FAERS Safety Report 17203146 (Version 2)
Quarter: 2020Q1

REPORT INFORMATION
  Report Type: Spontaneous
  Country: SE (occurrence: SE)
  Receive Date: 20191226
  Receipt Date: 20200108
  Transmission Date: 20200409
  Serious: Yes (Other)
  Sender: FDA-Public Use
  Company Number: SE-MYLANLABS-2019M1126428

PATIENT
  Age: 84 Year
  Sex: Female

DRUGS (1)
  1. LINEZOLID. [Suspect]
     Active Substance: LINEZOLID
     Indication: IMPLANT SITE INFECTION
     Dosage: 600 MG, BID
     Route: 048

REACTIONS (2)
  - Anaemia [Recovered/Resolved]
  - Off label use [Unknown]
